FAERS Safety Report 23982697 (Version 1)
Quarter: 2024Q2

REPORT INFORMATION
  Report Type: Spontaneous
  Country: US (occurrence: None)
  Receive Date: 20240617
  Receipt Date: 20240617
  Transmission Date: 20240715
  Serious: Yes (unspecified)
  Sender: FDA-Public Use
  Company Number: None

PATIENT
  Age: 52 Year
  Sex: Female

DRUGS (1)
  1. IT COSMETICS YOUR SKIN BUT BETTER CC PLUS NUDE GLOW COLOR CORRECTING M [Suspect]
     Active Substance: HOMOSALATE\OCTISALATE\OCTOCRYLENE
     Indication: Prophylaxis against solar radiation
     Route: 061

REACTIONS (5)
  - Sunburn [None]
  - Burning sensation [None]
  - Erythema [None]
  - Blister [None]
  - Pruritus [None]

NARRATIVE: CASE EVENT DATE: 20240531
